FAERS Safety Report 7000017-7 (Version None)
Quarter: 2010Q3

REPORT INFORMATION
  Report Type: 
  Country: None (occurrence: None)
  Receive Date: 20100920
  Receipt Date: 20070606
  Transmission Date: 20110219
  Serious: Yes (Other)
  Sender: FDA-Public Use
  Company Number: US-ASTRAZENECA-2006UW25526

PATIENT
  Age: 33 Year
  Sex: Male
  Weight: 102.5 kg

DRUGS (14)
  1. SEROQUEL [Suspect]
     Indication: SCHIZOPHRENIA
     Route: 048
     Dates: start: 20030101, end: 20051001
  2. SEROQUEL [Suspect]
     Indication: ATTENTION DEFICIT/HYPERACTIVITY DISORDER
     Route: 048
     Dates: start: 20030101, end: 20051001
  3. SEROQUEL [Suspect]
     Dosage: 500-400 MG
     Route: 048
     Dates: start: 20040512
  4. SEROQUEL [Suspect]
     Dosage: 500-400 MG
     Route: 048
     Dates: start: 20040512
  5. RISPERDAL [Suspect]
     Dates: start: 20030101
  6. ZYPREXA [Suspect]
     Dates: start: 20040101
  7. MELARIL [Concomitant]
  8. RITALIN [Concomitant]
  9. TRAZODONE HCL [Concomitant]
  10. LITHIUM [Concomitant]
     Dosage: 600-900 MG
     Route: 048
     Dates: start: 20040512
  11. ALPRAZOLAM [Concomitant]
  12. COGENTIN [Concomitant]
     Indication: ATTENTION DEFICIT/HYPERACTIVITY DISORDER
     Dates: start: 20040402
  13. NAVANE [Concomitant]
     Indication: ATTENTION DEFICIT/HYPERACTIVITY DISORDER
     Dates: start: 20040402
  14. BENADRYL [Concomitant]
     Indication: INSOMNIA
     Dates: start: 20040402

REACTIONS (5)
  - DEPRESSION [None]
  - DIABETES MELLITUS [None]
  - EXTRAPYRAMIDAL DISORDER [None]
  - HYPERPROLACTINAEMIA [None]
  - TARDIVE DYSKINESIA [None]
